FAERS Safety Report 23605444 (Version 1)
Quarter: 2024Q1

REPORT INFORMATION
  Report Type: Spontaneous
  Country: US (occurrence: US)
  Receive Date: 20240307
  Receipt Date: 20240307
  Transmission Date: 20240410
  Serious: Yes (Hospitalization, Other)
  Sender: FDA-Public Use
  Company Number: US-GRANULES-US-2024GRALIT00047

PATIENT
  Age: 71 Year
  Sex: Male

DRUGS (4)
  1. IBUPROFEN [Suspect]
     Active Substance: IBUPROFEN
     Indication: Abdominal pain
     Route: 065
  2. DOXYCYCLINE [Concomitant]
     Active Substance: DOXYCYCLINE
     Indication: Sepsis
     Route: 065
  3. AZTREONAM [Concomitant]
     Active Substance: AZTREONAM
     Indication: Sepsis
     Route: 065
  4. DEXAMETHASONE [Concomitant]
     Active Substance: DEXAMETHASONE
     Indication: COVID-19 pneumonia
     Route: 065

REACTIONS (7)
  - Tubulointerstitial nephritis [Recovered/Resolved]
  - Hyperkalaemia [Recovered/Resolved]
  - Acute kidney injury [Recovered/Resolved]
  - Acute hepatic failure [Recovered/Resolved]
  - Immune thrombocytopenia [Recovered/Resolved]
  - Autoimmune haemolytic anaemia [Recovered/Resolved]
  - Multiple organ dysfunction syndrome [Recovered/Resolved]
